FAERS Safety Report 4606972-4 (Version None)
Quarter: 2005Q1

REPORT INFORMATION
  Report Type: 
  Country: None (occurrence: None)
  Receive Date: 20050309
  Receipt Date: 20050226
  Transmission Date: 20050727
  Serious: Yes (Other)
  Sender: FDA-Public Use
  Company Number: 2005026213

PATIENT
  Age: 9 Year
  Sex: Male

DRUGS (1)
  1. ZYRTEC [Suspect]
     Indication: HYPERSENSITIVITY
     Dosage: 5 MG (5 MG, 1 IN 1 D), ORAL
     Route: 048
     Dates: start: 20040701

REACTIONS (10)
  - ABDOMINAL PAIN UPPER [None]
  - ASTHMA [None]
  - CHAPPED LIPS [None]
  - CONVULSION [None]
  - DIARRHOEA [None]
  - FATIGUE [None]
  - MEDICATION ERROR [None]
  - SKIN DISCOLOURATION [None]
  - SOMNOLENCE [None]
  - SWELLING [None]
